FAERS Safety Report 5895874-1 (Version None)
Quarter: 2008Q3

REPORT INFORMATION
  Report Type: 
  Country: None (occurrence: None)
  Receive Date: 20080924
  Receipt Date: 20080916
  Transmission Date: 20090109
  Serious: Yes (Other)
  Sender: FDA-Public Use
  Company Number: BR-AVENTIS-200817488GDDC

PATIENT
  Age: 28 Year
  Sex: Female
  Weight: 70 kg

DRUGS (2)
  1. METRONIDAZOLE [Suspect]
     Indication: UTERINE INFECTION
     Route: 048
     Dates: start: 20080801
  2. GARDENALE                          /00023202/ [Concomitant]
     Route: 048
     Dates: start: 19880101

REACTIONS (2)
  - CONVULSION [None]
  - DIZZINESS [None]
